FAERS Safety Report 6224181-2 (Version None)
Quarter: 2009Q2

REPORT INFORMATION
  Report Type: 
  Country: None (occurrence: None)
  Receive Date: 20090612
  Receipt Date: 20090311
  Transmission Date: 20091009
  Serious: No
  Sender: FDA-Public Use
  Company Number: US-ABBOTT-09P-163-0561939-00

PATIENT
  Sex: Male

DRUGS (4)
  1. HUMIRA [Suspect]
     Indication: CROHN'S DISEASE
     Dosage: (80MG TOOK 2 INJECTIONS INSTEAD OF 1)
     Dates: start: 20090307
  2. HUMIRA [Suspect]
     Dosage: (80 MG LOADING DOSE)
  3. HUMIRA [Suspect]
  4. HUMIRA [Suspect]
     Dosage: (160 MG LOADING DOSE)
     Dates: start: 20090206

REACTIONS (1)
  - OVERDOSE [None]
